FAERS Safety Report 8916462 (Version 1)
Quarter: 2012Q4

REPORT INFORMATION
  Report Type: 
  Country: VE (occurrence: VE)
  Receive Date: 20121120
  Receipt Date: 20121120
  Transmission Date: 20130627
  Serious: Yes (Other)
  Sender: FDA-Public Use
  Company Number: VE-PFIZER INC-2012279814

PATIENT
  Age: 88 Year
  Sex: Female

DRUGS (4)
  1. LYRICA [Suspect]
     Indication: PAIN
     Dosage: 25 mg, 1x/day
     Route: 048
     Dates: start: 20121018, end: 20121021
  2. LEXOTANIL [Concomitant]
     Indication: INSOMNIA
     Dosage: 3 mg, 1x/day
     Route: 048
     Dates: start: 1982
  3. ADALAT OROS [Concomitant]
     Indication: HYPERTENSION ARTERIAL
     Dosage: 20 mg, 1x/day
     Route: 048
  4. NATRILIX - SLOW RELEASE [Concomitant]
     Indication: HYPERTENSION ARTERIAL
     Dosage: 1.5 mg, 1x/day
     Route: 048

REACTIONS (3)
  - Asphyxia [Recovered/Resolved]
  - Hypertension [Recovered/Resolved]
  - Headache [Recovered/Resolved]
